FAERS Safety Report 6164653-2 (Version None)
Quarter: 2009Q2

REPORT INFORMATION
  Report Type: 
  Country: None (occurrence: None)
  Receive Date: 20090423
  Receipt Date: 20090417
  Transmission Date: 20091009
  Serious: Yes (Death, Other)
  Sender: FDA-Public Use
  Company Number: IL-CELGENEUS-082-20785-09041652

PATIENT

DRUGS (7)
  1. THALOMID [Suspect]
     Indication: MULTIPLE MYELOMA
     Route: 048
  2. DEXAMETHASONE 4MG TAB [Concomitant]
     Indication: MULTIPLE MYELOMA
     Route: 065
  3. CISPLATIN [Concomitant]
     Indication: MULTIPLE MYELOMA
     Route: 065
  4. ADRIAMYCIN RDF [Concomitant]
     Indication: MULTIPLE MYELOMA
     Route: 065
  5. CYCLOPHOSPHAMIDE [Concomitant]
     Indication: MULTIPLE MYELOMA
     Route: 065
  6. ETOPOSIDE [Concomitant]
     Indication: MULTIPLE MYELOMA
     Route: 065
  7. BORTEZOMIB [Concomitant]
     Indication: MULTIPLE MYELOMA
     Route: 065

REACTIONS (4)
  - ARRHYTHMIA [None]
  - EMBOLISM VENOUS [None]
  - FEBRILE NEUTROPENIA [None]
  - SEPTIC SHOCK [None]
